FAERS Safety Report 5253905-6 (Version None)
Quarter: 2007Q1

REPORT INFORMATION
  Report Type: 
  Country: None (occurrence: None)
  Receive Date: 20070228
  Receipt Date: 20070228
  Transmission Date: 20070707
  Serious: No
  Sender: FDA-Public Use
  Company Number: None

PATIENT
  Sex: Female
  Weight: 76.6579 kg

DRUGS (6)
  1. TAXOTERE [Suspect]
     Indication: OVARIAN CANCER
     Dosage: 100 MG IV Q 3 WKS
     Route: 042
     Dates: start: 20070206
  2. TAXOTERE [Suspect]
     Indication: OVARIAN CANCER
     Dosage: 100 MG IV Q 3 WKS
     Route: 042
     Dates: start: 20070227
  3. TAXOTERE [Suspect]
  4. CARBOPLATIN [Suspect]
     Indication: OVARIAN CANCER
     Dosage: 550 MG IV Q 3 WKS
     Route: 042
     Dates: start: 20070206
  5. CARBOPLATIN [Suspect]
     Indication: OVARIAN CANCER
     Dosage: 550 MG IV Q 3 WKS
     Route: 042
     Dates: start: 20070227
  6. CARBOPLATIN [Suspect]

REACTIONS (2)
  - FLUSHING [None]
  - RASH [None]
